FAERS Safety Report 11189294 (Version 1)
Quarter: 2015Q2

REPORT INFORMATION
  Report Type: Spontaneous
  Country: JP (occurrence: None)
  Receive Date: 20150611
  Receipt Date: 20150611
  Transmission Date: 20150821
  Serious: No
  Sender: FDA-Public Use
  Company Number: JP-2015-0542

PATIENT
  Age: 71 Year
  Sex: Female

DRUGS (9)
  1. TRASTUZUMAB (TRASTUZUMAB, TRASTUZUMAB) [Concomitant]
  2. LETROZOLE (LETROZOLE) [Concomitant]
     Active Substance: LETROZOLE
  3. TEPRENONE (TEPRENONE) [Concomitant]
  4. LANSOPRAZOLE (LANSOPRAZOLE) [Concomitant]
     Active Substance: LANSOPRAZOLE
  5. DOXIFLURIDINE (DOXIFLURIDINE) [Concomitant]
  6. CYCLOPHOSPHAMIDE (CYCLOPHOSPHAMIDE) [Concomitant]
     Active Substance: CYCLOPHOSPHAMIDE
  7. VINORELBINE [Suspect]
     Active Substance: VINORELBINE\VINORELBINE TARTRATE
     Indication: BREAST CANCER
  8. CAPECITABINE (CAPECITABINE, CAPECITABINE) [Concomitant]
     Active Substance: CAPECITABINE
  9. PACLITAXEL (PACLITAXEL) [Concomitant]
     Active Substance: PACLITAXEL

REACTIONS (4)
  - Visual impairment [None]
  - Cataract [None]
  - Dacryostenosis acquired [None]
  - Palmar-plantar erythrodysaesthesia syndrome [None]
